FAERS Safety Report 5387744-2 (Version None)
Quarter: 2007Q3

REPORT INFORMATION
  Report Type: 
  Country: None (occurrence: None)
  Receive Date: 20070716
  Receipt Date: 20070710
  Transmission Date: 20080115
  Serious: Yes (Other)
  Sender: FDA-Public Use
  Company Number: B0477699A

PATIENT
  Age: 73 Year
  Sex: Female

DRUGS (3)
  1. ARIXTRA [Suspect]
     Indication: THROMBOSIS PROPHYLAXIS
     Dosage: 2.5MG PER DAY
     Route: 058
     Dates: start: 20070614, end: 20070617
  2. DIOVAN [Concomitant]
     Route: 048
  3. UNKNOWN MEDICATION [Concomitant]
     Route: 042

REACTIONS (2)
  - CEREBRAL INFARCTION [None]
  - HYPOTENSION [None]
